FAERS Safety Report 5892669-X (Version None)
Quarter: 2008Q3

REPORT INFORMATION
  Report Type: 
  Country: None (occurrence: None)
  Receive Date: 20080923
  Receipt Date: 20080916
  Transmission Date: 20090109
  Serious: Yes (Other)
  Sender: FDA-Public Use
  Company Number: PHHY2008JP21953

PATIENT
  Sex: Female

DRUGS (5)
  1. LUDIOMIL [Suspect]
     Dosage: 10 MG DAILY
     Route: 048
     Dates: start: 20080711
  2. LUDIOMIL [Suspect]
     Dosage: 60 MG DAILY
     Route: 048
  3. MYSLEE [Concomitant]
     Dosage: UNK
     Route: 048
     Dates: start: 20080711
  4. DORAL [Concomitant]
     Dosage: UNK
     Route: 048
     Dates: start: 20080711
  5. EVISTA [Concomitant]
     Dosage: UNK
     Route: 048
     Dates: start: 20080711

REACTIONS (3)
  - INTERSTITIAL LUNG DISEASE [None]
  - PYREXIA [None]
  - SOMNOLENCE [None]
